FAERS Safety Report 10334569 (Version 1)
Quarter: 2014Q3

REPORT INFORMATION
  Report Type: Spontaneous
  Country: US (occurrence: US)
  Receive Date: 20140723
  Receipt Date: 20140723
  Transmission Date: 20150326
  Serious: No
  Sender: FDA-Public Use
  Company Number: US-MYLANLABS-2013S1016900

PATIENT
  Sex: Female

DRUGS (2)
  1. ZOLOFT [Suspect]
     Active Substance: SERTRALINE HYDROCHLORIDE
  2. HALOPERIDOL TABLETS, USP [Suspect]
     Active Substance: HALOPERIDOL
     Indication: SCHIZOAFFECTIVE DISORDER
     Route: 048
     Dates: start: 20130202, end: 20130527

REACTIONS (1)
  - Delusion [Not Recovered/Not Resolved]

NARRATIVE: CASE EVENT DATE: 20130527
